FAERS Safety Report 8654056 (Version 2)
Quarter: 2012Q4

REPORT INFORMATION
  Report Type: 
  Country: US (occurrence: US)
  Receive Date: 20120709
  Receipt Date: 20121101
  Transmission Date: 20130627
  Serious: Yes (Hospitalization, Other)
  Sender: FDA-Public Use
  Company Number: US-PFIZER INC-2012161349

PATIENT
  Age: 56 Year
  Sex: Male

DRUGS (3)
  1. CHANTIX [Suspect]
     Indication: SMOKING CESSATION THERAPY
     Dosage: starter pack
     Dates: start: 20090507, end: 201012
  2. METFORMIN [Concomitant]
     Indication: DIABETES
     Dosage: UNK
     Dates: start: 2009
  3. GLYBURIDE [Concomitant]
     Indication: DIABETES
     Dosage: UNK
     Dates: start: 2009

REACTIONS (3)
  - Myocardial infarction [Not Recovered/Not Resolved]
  - Cardiac failure congestive [Unknown]
  - Chronic obstructive pulmonary disease [Unknown]
